FAERS Safety Report 6439004-6 (Version None)
Quarter: 2009Q4

REPORT INFORMATION
  Report Type: 
  Country: None (occurrence: None)
  Receive Date: 20091112
  Receipt Date: 20080903
  Transmission Date: 20100525
  Serious: Yes (Other)
  Sender: FDA-Public Use
  Company Number: 200814014

PATIENT
  Age: 6 Year
  Sex: Male
  Weight: 19.8 kg

DRUGS (3)
  1. PRIVIGEN [Suspect]
     Indication: IMMUNODEFICIENCY COMMON VARIABLE
     Dosage: 10 G Q1MO IV
     Route: 042
     Dates: start: 20080728, end: 20080728
  2. PRIVIGEN [Suspect]
     Indication: IMMUNOGLOBULINS ABNORMAL
     Dosage: 10 G Q1MO IV
     Route: 042
     Dates: start: 20080728, end: 20080728
  3. METADATE CD [Concomitant]

REACTIONS (4)
  - ASTHENIA [None]
  - CHILLS [None]
  - HEADACHE [None]
  - PALLOR [None]
